FAERS Safety Report 10218694 (Version 1)
Quarter: 2014Q2

REPORT INFORMATION
  Report Type: Spontaneous
  Country: US (occurrence: US)
  Receive Date: 20140605
  Receipt Date: 20140605
  Transmission Date: 20141212
  Serious: No
  Sender: FDA-Public Use
  Company Number: US-PFIZER INC-2014153328

PATIENT
  Age: 47 Year
  Sex: Female
  Weight: 68.03 kg

DRUGS (1)
  1. CHANTIX [Suspect]
     Indication: SMOKING CESSATION THERAPY
     Dosage: 0.5 MG, DAILY
     Dates: start: 20140214, end: 20140221

REACTIONS (5)
  - Abnormal behaviour [Unknown]
  - Abnormal dreams [Unknown]
  - Irritability [Unknown]
  - Anger [Unknown]
  - Feeling abnormal [Unknown]
